FAERS Safety Report 7573216-3 (Version None)
Quarter: 2011Q2

REPORT INFORMATION
  Report Type: 
  Country: None (occurrence: None)
  Receive Date: 20110627
  Receipt Date: 20110621
  Transmission Date: 20111010
  Serious: Yes (Other)
  Sender: FDA-Public Use
  Company Number: US-PFIZER INC-2011137495

PATIENT
  Sex: Female
  Weight: 54.4 kg

DRUGS (1)
  1. DEPO-PROVERA [Suspect]
     Indication: CONTRACEPTION
     Dosage: UNK
     Route: 030
     Dates: start: 20110101, end: 20110101

REACTIONS (3)
  - PULMONARY THROMBOSIS [None]
  - PULMONARY HAEMORRHAGE [None]
  - PULMONARY EMBOLISM [None]
